FAERS Safety Report 23775274 (Version 1)
Quarter: 2024Q2

REPORT INFORMATION
  Report Type: Spontaneous
  Country: US (occurrence: US)
  Receive Date: 20240423
  Receipt Date: 20240423
  Transmission Date: 20240716
  Serious: Yes (Other)
  Sender: FDA-Public Use
  Company Number: US-PFIZER INC-202400091491

PATIENT

DRUGS (1)
  1. AMIODARONE HYDROCHLORIDE [Suspect]
     Active Substance: AMIODARONE HYDROCHLORIDE
     Dosage: UNK

REACTIONS (8)
  - Acute hepatic failure [Unknown]
  - Septic shock [Unknown]
  - Heparin-induced thrombocytopenia [Unknown]
  - Alanine aminotransferase increased [Recovering/Resolving]
  - Aspartate aminotransferase increased [Recovering/Resolving]
  - International normalised ratio abnormal [Recovered/Resolved]
  - Prothrombin time abnormal [Recovered/Resolved]
  - Activated partial thromboplastin time abnormal [Recovered/Resolved]
